FAERS Safety Report 24111652 (Version 1)
Quarter: 2024Q3

REPORT INFORMATION
  Report Type: Spontaneous
  Country: MY (occurrence: None)
  Receive Date: 20240718
  Receipt Date: 20240718
  Transmission Date: 20241017
  Serious: Yes (Hospitalization, Other)
  Sender: ASTRAZENECA
  Company Number: 2024A159944

PATIENT
  Age: 67 Year
  Sex: Male

DRUGS (2)
  1. BRILINTA [Suspect]
     Active Substance: TICAGRELOR
     Indication: Acute coronary syndrome
     Route: 048
     Dates: start: 202309
  2. ASPIRIN [Concomitant]
     Active Substance: ASPIRIN
     Dates: start: 202309

REACTIONS (2)
  - Haemorrhage intracranial [Unknown]
  - Cerebrovascular accident [Unknown]
